FAERS Safety Report 8974010 (Version 1)
Quarter: 2012Q4

REPORT INFORMATION
  Report Type: 
  Country: US (occurrence: US)
  Receive Date: 20121218
  Receipt Date: 20121218
  Transmission Date: 20130627
  Serious: No
  Sender: FDA-Public Use
  Company Number: US-BRISTOL-MYERS SQUIBB COMPANY-16843724

PATIENT
  Age: 47 Year
  Sex: Male

DRUGS (1)
  1. ABILIFY [Suspect]
     Dosage: 1 DF: Half tab

REACTIONS (11)
  - Drug prescribing error [Unknown]
  - Incorrect dose administered [Unknown]
  - Dyspnoea [Unknown]
  - Dizziness [Unknown]
  - Nasal congestion [Unknown]
  - Balance disorder [Unknown]
  - Musculoskeletal stiffness [Unknown]
  - Somnolence [Unknown]
  - Fatigue [Unknown]
  - Nocturia [Unknown]
  - Vision blurred [Unknown]
